FAERS Safety Report 4638636-5 (Version None)
Quarter: 2005Q2

REPORT INFORMATION
  Report Type: 
  Country: None (occurrence: None)
  Receive Date: 20050415
  Receipt Date: 20050415
  Transmission Date: 20051028
  Serious: Yes (Hospitalization, Other)
  Sender: FDA-Public Use
  Company Number: None

PATIENT
  Age: 34 Year
  Sex: Female

DRUGS (3)
  1. THYMOGLOBULIN [Suspect]
     Indication: RENAL TRANSPLANT
     Dosage: 250ML  IV OVER 4 HOURS
     Route: 042
     Dates: start: 20050210
  2. ANCEF [Concomitant]
  3. SOLU-MEDROL [Concomitant]

REACTIONS (6)
  - ANAPHYLACTIC REACTION [None]
  - CARDIAC ARREST [None]
  - OXYGEN SATURATION DECREASED [None]
  - PERICARDIAL DRAINAGE [None]
  - PROCEDURAL COMPLICATION [None]
  - PULSE ABSENT [None]
